FAERS Safety Report 10501152 (Version 1)
Quarter: 2014Q4

REPORT INFORMATION
  Report Type: Spontaneous
  Country: US (occurrence: None)
  Receive Date: 20141006
  Receipt Date: 20141006
  Transmission Date: 20150528
  Serious: Yes (Death, Hospitalization)
  Sender: FDA-Public Use
  Company Number: None

PATIENT
  Age: 60 Year
  Sex: Male
  Weight: 73.2 kg

DRUGS (2)
  1. CYTARABINE. [Suspect]
     Active Substance: CYTARABINE
     Dates: end: 20140927
  2. IDARUBICIN [Suspect]
     Active Substance: IDARUBICIN
     Dates: end: 20140925

REACTIONS (15)
  - Abdominal pain [None]
  - Shock [None]
  - Hypovolaemia [None]
  - Hypotension [None]
  - Cardio-respiratory arrest [None]
  - Pancytopenia [None]
  - Nausea [None]
  - Haemodynamic instability [None]
  - Diarrhoea [None]
  - Acidosis [None]
  - Hypophagia [None]
  - Diarrhoea haemorrhagic [None]
  - Vomiting [None]
  - No therapeutic response [None]
  - Multi-organ failure [None]

NARRATIVE: CASE EVENT DATE: 20140929
